FAERS Safety Report 15596581 (Version 2)
Quarter: 2018Q4

REPORT INFORMATION
  Report Type: Spontaneous
  Country: BR (occurrence: BR)
  Receive Date: 20181107
  Receipt Date: 20181217
  Transmission Date: 20190205
  Serious: No
  Sender: FDA-Public Use
  Company Number: BR-AMGEN-BRASP2018139620

PATIENT
  Age: 46 Year
  Sex: Female

DRUGS (9)
  1. METICORTEN [Concomitant]
     Active Substance: PREDNISONE
     Dosage: UNK
  2. PRISTIQ EXTENDED-RELEASE [Concomitant]
     Active Substance: DESVENLAFAXINE SUCCINATE
     Dosage: UNK
  3. DIVIDOL [Concomitant]
     Active Substance: VIMINOL P-HYDROXYBENZOATE
     Indication: PAIN
     Dosage: 70 MG, UNK
     Route: 065
  4. DONAREN [Concomitant]
     Active Substance: TRAZODONE HYDROCHLORIDE
     Dosage: UNK
  5. ZOLPAZ [Concomitant]
     Dosage: UNK
  6. ENBREL [Suspect]
     Active Substance: ETANERCEPT
     Indication: SPONDYLITIS
     Dosage: 50 MG, QWK
     Route: 065
     Dates: start: 20180712
  7. ENBREL [Suspect]
     Active Substance: ETANERCEPT
     Dosage: 50 MG, QWK
     Route: 065
     Dates: start: 2018
  8. TILEX [Concomitant]
     Indication: PAIN
     Dosage: 30 MG, UNK
     Route: 065
  9. LYRICA [Concomitant]
     Active Substance: PREGABALIN
     Dosage: UNK

REACTIONS (6)
  - Injection site hypersensitivity [Recovered/Resolved]
  - Injection site erythema [Recovered/Resolved]
  - Asthenia [Recovered/Resolved]
  - Injection site swelling [Not Recovered/Not Resolved]
  - Injection site discolouration [Recovered/Resolved]
  - Dizziness [Recovered/Resolved]

NARRATIVE: CASE EVENT DATE: 2018
